FAERS Safety Report 20592053 (Version 6)
Quarter: 2024Q2

REPORT INFORMATION
  Report Type: Other
  Country: US (occurrence: None)
  Receive Date: 20220314
  Receipt Date: 20240509
  Transmission Date: 20240715
  Serious: Yes (Hospitalization, Other)
  Sender: FDA-Public Use
  Company Number: US-ROCHE-3036900

PATIENT
  Age: 43 Year
  Sex: Female
  Weight: 77.18 kg

DRUGS (17)
  1. OCREVUS [Suspect]
     Active Substance: OCRELIZUMAB
     Indication: Relapsing-remitting multiple sclerosis
     Route: 042
  2. OCREVUS [Suspect]
     Active Substance: OCRELIZUMAB
     Route: 042
  3. OCREVUS [Suspect]
     Active Substance: OCRELIZUMAB
     Route: 042
  4. PROZAC [Concomitant]
     Active Substance: FLUOXETINE HYDROCHLORIDE
     Indication: Depression
     Dosage: YES
     Route: 048
  5. LYRICA [Concomitant]
     Active Substance: PREGABALIN
     Indication: Neuropathy peripheral
     Dosage: YES
     Route: 048
     Dates: start: 2015
  6. SYNTHROID [Concomitant]
     Active Substance: LEVOTHYROXINE SODIUM
     Indication: Hypothyroidism
     Dosage: YES
     Route: 048
  7. SYNTHROID [Concomitant]
     Active Substance: LEVOTHYROXINE SODIUM
     Indication: Autoimmune thyroiditis
  8. REQUIP [Concomitant]
     Active Substance: ROPINIROLE HYDROCHLORIDE
     Indication: Restless legs syndrome
     Dosage: YES
     Route: 048
     Dates: start: 2018
  9. PROTONIX (PHILIPPINES) [Concomitant]
     Indication: Gastrooesophageal reflux disease
     Dosage: YES
     Route: 048
     Dates: start: 2020
  10. OXYBUTYNIN [Concomitant]
     Active Substance: OXYBUTYNIN\OXYBUTYNIN CHLORIDE
     Indication: Urinary incontinence
     Dosage: YES
     Route: 048
     Dates: start: 2009
  11. TRAMADOL [Concomitant]
     Active Substance: TRAMADOL\TRAMADOL HYDROCHLORIDE
     Indication: Pain
     Dosage: PRN ;ONGOING: YES
     Route: 048
  12. ZANAFLEX [Concomitant]
     Active Substance: TIZANIDINE HYDROCHLORIDE
     Indication: Muscle spasms
     Dosage: PRN ;ONGOING: YES
     Route: 048
  13. SUMATRIPTAN [Concomitant]
     Active Substance: SUMATRIPTAN
     Indication: Migraine
     Dosage: TAKE 100 MG AND IF NO RELIEF WITHIN ONE HOUR TAKE ANOTHER 100 MG ;ONGOING: YES
     Route: 048
  14. AMBIEN [Concomitant]
     Active Substance: ZOLPIDEM TARTRATE
     Indication: Insomnia
     Dosage: AT NIGHT ;ONGOING: YES
     Route: 048
  15. AUBAGIO [Concomitant]
     Active Substance: TERIFLUNOMIDE
  16. COPAXONE [Concomitant]
     Active Substance: GLATIRAMER ACETATE
  17. REBIF [Concomitant]
     Active Substance: INTERFERON BETA-1A

REACTIONS (22)
  - Cellulitis [Recovered/Resolved]
  - Gastrooesophageal reflux disease [Not Recovered/Not Resolved]
  - Pain [Not Recovered/Not Resolved]
  - Off label use [Unknown]
  - Tremor [Unknown]
  - Mobility decreased [Unknown]
  - Balance disorder [Unknown]
  - Incontinence [Unknown]
  - Cognitive disorder [Unknown]
  - Fatigue [Unknown]
  - Neuralgia [Unknown]
  - Hypoaesthesia [Recovered/Resolved]
  - White blood cell count decreased [Unknown]
  - Pyrexia [Recovered/Resolved]
  - Pelvic pain [Not Recovered/Not Resolved]
  - Vaginal discharge [Not Recovered/Not Resolved]
  - Urinary tract infection [Recovered/Resolved]
  - Vaginal infection [Not Recovered/Not Resolved]
  - Insomnia [Not Recovered/Not Resolved]
  - Ovarian cyst [Not Recovered/Not Resolved]
  - Accident [Unknown]
  - Incorrect drug administration rate [Unknown]

NARRATIVE: CASE EVENT DATE: 20200101
